FAERS Safety Report 5165726-3 (Version None)
Quarter: 2006Q4

REPORT INFORMATION
  Report Type: 
  Country: None (occurrence: None)
  Receive Date: 20061128
  Receipt Date: 20061117
  Transmission Date: 20070319
  Serious: Yes (Other)
  Sender: FDA-Public Use
  Company Number: 2006AL003613

PATIENT
  Age: 29 Year
  Sex: Female

DRUGS (4)
  1. TRAMADOL HCL [Suspect]
     Indication: BACK PAIN
     Dosage: 400 MG; QD; PO
     Route: 048
     Dates: start: 20061001, end: 20061001
  2. DULOXETINE [Concomitant]
  3. ACETAMINOPHEN [Concomitant]
  4. PROPAVAN [Concomitant]

REACTIONS (3)
  - ANAPHYLACTIC REACTION [None]
  - PHARMACEUTICAL PRODUCT COMPLAINT [None]
  - REACTION TO DRUG EXCIPIENTS [None]
